FAERS Safety Report 15945737 (Version 2)
Quarter: 2019Q1

REPORT INFORMATION
  Report Type: Spontaneous
  Country: US (occurrence: US)
  Receive Date: 20190211
  Receipt Date: 20190320
  Transmission Date: 20190417
  Serious: No
  Sender: FDA-Public Use
  Company Number: US-AMGEN-USASP2019018475

PATIENT
  Age: 61 Year
  Sex: Female
  Weight: 54.42 kg

DRUGS (1)
  1. PROLIA [Suspect]
     Active Substance: DENOSUMAB
     Indication: OSTEOPOROSIS POSTMENOPAUSAL
     Dosage: UNK,Q6MO
     Route: 058
     Dates: start: 20180625, end: 20190211

REACTIONS (1)
  - Breast enlargement [Not Recovered/Not Resolved]

NARRATIVE: CASE EVENT DATE: 20190211
